FAERS Safety Report 7302932-3 (Version None)
Quarter: 2011Q1

REPORT INFORMATION
  Report Type: 
  Country: None (occurrence: None)
  Receive Date: 20110218
  Receipt Date: 20110209
  Transmission Date: 20110831
  Serious: Yes (Other)
  Sender: FDA-Public Use
  Company Number: HR-ASTRAZENECA-2011SE05885

PATIENT
  Sex: Female
  Weight: 67 kg

DRUGS (5)
  1. CONCOR [Concomitant]
     Indication: CORONARY ARTERY DISEASE
     Route: 048
     Dates: start: 20080101
  2. IRUZID [Concomitant]
     Indication: HYPERTENSION
     Dosage: 1 X 20/12,5 MG DAILY
     Route: 048
     Dates: start: 19980101
  3. MARTEFARIN [Concomitant]
     Route: 048
     Dates: start: 20090101
  4. CRESTOR [Suspect]
     Indication: HYPERLIPIDAEMIA
     Route: 048
     Dates: start: 20101219, end: 20101222
  5. LACIPIL [Concomitant]
     Indication: HYPERTENSION
     Route: 048
     Dates: start: 19990101

REACTIONS (1)
  - HYPOTENSION [None]
